FAERS Safety Report 23736901 (Version 2)
Quarter: 2025Q2

REPORT INFORMATION
  Report Type: Spontaneous
  Country: FR (occurrence: FR)
  Receive Date: 20240412
  Receipt Date: 20250619
  Transmission Date: 20250717
  Serious: Yes (Hospitalization)
  Sender: RANBAXY
  Company Number: FR-SUN PHARMACEUTICAL INDUSTRIES LTD-2024RR-442009

PATIENT
  Age: 70 Year
  Sex: Male

DRUGS (6)
  1. PANTOPRAZOLE [Suspect]
     Active Substance: PANTOPRAZOLE
     Indication: Gastric ulcer
     Route: 040
     Dates: start: 20220915
  2. NOREPINEPHRINE BITARTRATE [Suspect]
     Active Substance: NOREPINEPHRINE BITARTRATE
     Indication: Shock haemorrhagic
     Route: 065
  3. CALCIUM [Suspect]
     Active Substance: CALCIUM
     Indication: Product used for unknown indication
     Route: 065
  4. ERYTHROMYCIN [Suspect]
     Active Substance: ERYTHROMYCIN
     Indication: Product used for unknown indication
     Route: 065
  5. CONFIDEX [Suspect]
     Active Substance: COAGULATION FACTOR IX HUMAN\COAGULATION FACTOR VII HUMAN\COAGULATION FACTOR X HUMAN\PROTEIN C\PROTEI
     Indication: Shock haemorrhagic
     Route: 065
  6. OCTREOTIDE [Suspect]
     Active Substance: OCTREOTIDE
     Indication: Haemorrhage
     Route: 065

REACTIONS (4)
  - Motor dysfunction [Recovered/Resolved with Sequelae]
  - Injection site extravasation [Recovered/Resolved with Sequelae]
  - Erysipelas [Recovered/Resolved with Sequelae]
  - Skin necrosis [Recovered/Resolved with Sequelae]

NARRATIVE: CASE EVENT DATE: 20220915
